FAERS Safety Report 6311158 (Version 2)
Quarter: 2018Q4

REPORT INFORMATION
  Report Type: Spontaneous
  Country: SE (occurrence: IT)
  Receive Date: 20070514
  Receipt Date: 20181205
  Transmission Date: 20190205
  Serious: Yes (Life-Threatening)
  Sender: FDA-Public Use
  Company Number: IT-AVENTIS-200712175EU

PATIENT
  Age: 83 Year
  Sex: Female

DRUGS (9)
  1. LASIX [Suspect]
     Active Substance: FUROSEMIDE
     Indication: MYOCARDIAL ISCHAEMIA
     Dosage: 25 MG,QD
     Route: 048
     Dates: start: 20070228, end: 20070426
  2. RAMIPRIL. [Interacting]
     Active Substance: RAMIPRIL
     Indication: MYOCARDIAL ISCHAEMIA
  3. INDOBUFENE [Concomitant]
     Indication: MYOCARDIAL ISCHAEMIA
     Dosage: 400 MG,QD
     Route: 048
     Dates: start: 20070228, end: 20070426
  4. LUVION (POTASSIUM CANRENOATE) [Interacting]
     Active Substance: CANRENOATE POTASSIUM
     Indication: MYOCARDIAL ISCHAEMIA
     Dosage: 50 MG,QOD
     Route: 048
     Dates: start: 20070201, end: 20070426
  5. CONGESCOR [Concomitant]
     Active Substance: BISOPROLOL
     Indication: MYOCARDIAL ISCHAEMIA
     Dosage: 1.25 MG,UNK
     Route: 048
     Dates: start: 20070228, end: 20070426
  6. ANTRA [OMEPRAZOLE] [Concomitant]
     Indication: HYPERCHLORHYDRIA
     Dosage: 20 MG,UNK
     Route: 048
     Dates: start: 20070228, end: 20070426
  7. RAMIPRIL. [Interacting]
     Active Substance: RAMIPRIL
     Indication: MYOCARDIAL INFARCTION
     Dosage: 2.5 MG,QD
     Route: 048
     Dates: start: 20070228, end: 20070426
  8. DELTACORTENE [Concomitant]
     Active Substance: PREDNISONE
     Indication: MYOCARDIAL ISCHAEMIA
     Dosage: 12.5 MG,QD
     Route: 048
     Dates: start: 20070228, end: 20070426
  9. LANOXIN [Concomitant]
     Active Substance: DIGOXIN
     Indication: MYOCARDIAL ISCHAEMIA
     Dosage: .12 MG,QD
     Route: 048
     Dates: start: 20070228, end: 20070426

REACTIONS (4)
  - Acute kidney injury [Recovering/Resolving]
  - Cardioactive drug level increased [Recovering/Resolving]
  - Hypovolaemic shock [Not Recovered/Not Resolved]
  - Bradycardia [Recovering/Resolving]

NARRATIVE: CASE EVENT DATE: 20070426
